FAERS Safety Report 23985946 (Version 1)
Quarter: 2024Q2

REPORT INFORMATION
  Report Type: Report from Study
  Country: US (occurrence: US)
  Receive Date: 20240618
  Receipt Date: 20240618
  Transmission Date: 20240716
  Serious: Yes (Hospitalization)
  Sender: FDA-Public Use
  Company Number: US-ELI_LILLY_AND_COMPANY-US202406006078

PATIENT
  Age: 28 Year
  Sex: Female

DRUGS (1)
  1. TIRZEPATIDE [Suspect]
     Active Substance: TIRZEPATIDE
     Indication: Blood insulin
     Dosage: 2.5 MG, WEEKLY (1/W)
     Route: 065
     Dates: start: 20240408

REACTIONS (3)
  - Drug hypersensitivity [Not Recovered/Not Resolved]
  - Obsessive-compulsive disorder [Unknown]
  - Off label use [Unknown]

NARRATIVE: CASE EVENT DATE: 20240408
